FAERS Safety Report 25854795 (Version 9)
Quarter: 2025Q4

REPORT INFORMATION
  Report Type: Report from Study
  Country: US (occurrence: US)
  Receive Date: 20250927
  Receipt Date: 20251212
  Transmission Date: 20260118
  Serious: Yes (Death, Other)
  Sender: SANOFI AVENTIS
  Company Number: US-SA-2025SA283830

PATIENT
  Age: 30 Year
  Sex: Male
  Weight: 109 kg

DRUGS (41)
  1. TEPLIZUMAB-MZWV [Suspect]
     Active Substance: TEPLIZUMAB-MZWV
     Indication: Diabetes prophylaxis
     Dosage: 154 UG, 1X
     Route: 042
     Dates: start: 20250903, end: 20250903
  2. TEPLIZUMAB-MZWV [Suspect]
     Active Substance: TEPLIZUMAB-MZWV
     Dosage: 296 UG, 1X
     Route: 042
     Dates: start: 20250904, end: 20250904
  3. TEPLIZUMAB-MZWV [Suspect]
     Active Substance: TEPLIZUMAB-MZWV
     Dosage: 592 UG, 1X
     Route: 042
     Dates: start: 20250905, end: 20250905
  4. TEPLIZUMAB-MZWV [Suspect]
     Active Substance: TEPLIZUMAB-MZWV
     Dosage: 1185 UG, 1X
     Route: 042
     Dates: start: 20250906, end: 20250906
  5. TEPLIZUMAB-MZWV [Suspect]
     Active Substance: TEPLIZUMAB-MZWV
     Dosage: 2441 UG, 1X
     Route: 042
     Dates: start: 20250907, end: 20250916
  6. PANTOPRAZOLE [Concomitant]
     Active Substance: PANTOPRAZOLE
     Indication: Gastrooesophageal reflux disease
     Dosage: 1 DF, QD
     Route: 048
     Dates: start: 20230519
  7. PANTOPRAZOLE [Concomitant]
     Active Substance: PANTOPRAZOLE
     Dosage: 1 TABLET BY ORAL ROUTE EVERY DAY
     Route: 048
     Dates: start: 20240719
  8. HYDROXYZINE HYDROCHLORIDE [Concomitant]
     Active Substance: HYDROXYZINE HYDROCHLORIDE
     Dosage: 1 TABLET BY ORAL ROUTE 4 TIMES EVERY DAY
     Dates: start: 20210427
  9. METFORMIN [Concomitant]
     Active Substance: METFORMIN HYDROCHLORIDE
     Dosage: 2 DF, BID
     Route: 048
     Dates: start: 20250310, end: 2025
  10. METFORMIN [Concomitant]
     Active Substance: METFORMIN HYDROCHLORIDE
     Dosage: UNK
     Route: 048
     Dates: start: 20250918
  11. ARMOUR THYROID [Concomitant]
     Active Substance: THYROID, PORCINE
     Indication: Hypothyroidism
     Dosage: 1 TABLET BY ORAL ROUTE EVERY DAY
     Route: 048
     Dates: start: 20250616, end: 20250729
  12. ARMOUR THYROID [Concomitant]
     Active Substance: THYROID, PORCINE
     Dosage: 1 TABLET EVERY DAY
     Route: 048
     Dates: start: 20230519
  13. ARMOUR THYROID [Concomitant]
     Active Substance: THYROID, PORCINE
  14. ARMOUR THYROID [Concomitant]
     Active Substance: THYROID, PORCINE
     Dosage: 1 TABLET EVERY DAY
     Route: 048
     Dates: start: 20240118
  15. ARMOUR THYROID [Concomitant]
     Active Substance: THYROID, PORCINE
     Dosage: 1 TABLET EVERY DAY
     Route: 048
     Dates: start: 20250729
  16. LOSARTAN [Concomitant]
     Active Substance: LOSARTAN
     Dosage: UNK
  17. ACTOS [Concomitant]
     Active Substance: PIOGLITAZONE HYDROCHLORIDE
     Dosage: 1 TABLET BY ORAL ROUTE EVERY DAY
     Route: 048
     Dates: start: 20250514
  18. ESCITALOPRAM [Concomitant]
     Active Substance: ESCITALOPRAM OXALATE
     Dosage: 1 TABLET BY MOUTH DAILY
     Route: 048
     Dates: start: 20250515
  19. LEXAPRO [Concomitant]
     Active Substance: ESCITALOPRAM OXALATE
  20. LOSARTAN POTASSIUM [Concomitant]
     Active Substance: LOSARTAN POTASSIUM
     Dosage: 1 TABLET BY MOUTH DAILY
     Route: 048
     Dates: start: 20250326
  21. CETIRIZINE [Concomitant]
     Active Substance: CETIRIZINE HYDROCHLORIDE
     Indication: Premedication
  22. CETIRIZINE [Concomitant]
     Active Substance: CETIRIZINE HYDROCHLORIDE
  23. CEFTRIAXONE [Concomitant]
     Active Substance: CEFTRIAXONE
     Dosage: UNK
     Dates: start: 202509
  24. FLUCONAZOLE [Concomitant]
     Active Substance: FLUCONAZOLE
     Dosage: UNK
     Dates: start: 202509
  25. FLUCONAZOLE [Concomitant]
     Active Substance: FLUCONAZOLE
     Dosage: 200.000MG
     Route: 048
     Dates: start: 20250930, end: 20250930
  26. AUGMENTIN [Concomitant]
     Active Substance: AMOXICILLIN\CLAVULANATE POTASSIUM
     Dosage: UNK
     Dates: start: 202509
  27. DECADRON [Concomitant]
     Active Substance: DEXAMETHASONE
     Dosage: UNK
     Dates: start: 202509
  28. DEXAMETHASONE [Concomitant]
     Active Substance: DEXAMETHASONE
     Indication: Oropharyngeal pain
     Dosage: 6.000MG
     Route: 042
     Dates: start: 20250930, end: 20250930
  29. DEXAMETHASONE [Concomitant]
     Active Substance: DEXAMETHASONE
     Indication: Tonsillitis
  30. TYLENOL [Concomitant]
     Active Substance: ACETAMINOPHEN
     Indication: Oropharyngeal pain
     Dosage: UNK
  31. TYLENOL [Concomitant]
     Active Substance: ACETAMINOPHEN
     Dosage: DAILY FOR AT LEAST DAYS 1-5 OF 14
     Route: 048
     Dates: start: 20250903, end: 20250916
  32. CLOMID [Concomitant]
     Active Substance: CLOMIPHENE CITRATE
     Indication: Blood testosterone decreased
     Dosage: UNK
     Dates: start: 202204, end: 202401
  33. CLOMID [Concomitant]
     Active Substance: CLOMIPHENE CITRATE
     Indication: Infertility
  34. BASAGLAR KWIKPEN [Concomitant]
     Active Substance: INSULIN GLARGINE
     Dosage: 30 IU, QD
     Dates: start: 20240909, end: 202409
  35. BASAGLAR KWIKPEN [Concomitant]
     Active Substance: INSULIN GLARGINE
     Dosage: 10 U
     Dates: start: 202409, end: 202409
  36. BASAGLAR KWIKPEN [Concomitant]
     Active Substance: INSULIN GLARGINE
     Dosage: 8 U
     Dates: start: 202409, end: 2024
  37. AMOXICILLIN [Concomitant]
     Active Substance: AMOXICILLIN
     Dosage: UNK
     Dates: start: 20250929
  38. VITAMIN D [Concomitant]
     Active Substance: VITAMIN D NOS
     Dosage: UNK
  39. OMEPRAZOLE [Concomitant]
     Active Substance: OMEPRAZOLE
     Indication: Gastrooesophageal reflux disease
     Dosage: UNK
  40. ZINC [Concomitant]
     Active Substance: ZINC
     Dosage: UNK
  41. TESTOSTERONE CYPIONATE [Concomitant]
     Active Substance: TESTOSTERONE CYPIONATE
     Indication: Hypogonadism
     Dosage: UNK
     Dates: start: 202203, end: 202204

REACTIONS (49)
  - Cardio-respiratory arrest [Fatal]
  - Respiratory arrest [Fatal]
  - Corneal reflex decreased [Fatal]
  - Unresponsive to stimuli [Fatal]
  - Pulseless electrical activity [Fatal]
  - Loss of consciousness [Fatal]
  - Cardiac arrest [Fatal]
  - Fall [Fatal]
  - Cyanosis [Fatal]
  - Seizure [Unknown]
  - Apnoea [Unknown]
  - Thrombocytopenia [Unknown]
  - Neutropenia [Recovered/Resolved]
  - Sepsis [Unknown]
  - Abdominal pain upper [Unknown]
  - Tonsillitis [Unknown]
  - Mouth swelling [Unknown]
  - Pharyngeal swelling [Unknown]
  - Condition aggravated [Unknown]
  - Tonsillar hypertrophy [Unknown]
  - Dysphagia [Unknown]
  - Tachycardia [Unknown]
  - Blood lactic acid increased [Unknown]
  - Lymphadenopathy [Unknown]
  - Malaise [Unknown]
  - Dyspnoea [Unknown]
  - Pulmonary pain [Unknown]
  - Feeling cold [Unknown]
  - Viral infection [Unknown]
  - Pharyngitis [Unknown]
  - Dizziness [Unknown]
  - Haematocrit increased [Unknown]
  - Somnolence [Unknown]
  - Back pain [Recovered/Resolved]
  - Pain in extremity [Unknown]
  - Condition aggravated [Unknown]
  - Aspartate aminotransferase increased [Unknown]
  - Alanine aminotransferase increased [Unknown]
  - White blood cell count decreased [Recovered/Resolved]
  - Lymphocyte count decreased [Unknown]
  - Diarrhoea [Unknown]
  - Myalgia [Unknown]
  - Nausea [Unknown]
  - Rash [Recovered/Resolved]
  - Vomiting [Unknown]
  - Pyrexia [Unknown]
  - Fatigue [Unknown]
  - Arthralgia [Unknown]
  - Headache [Recovered/Resolved]

NARRATIVE: CASE EVENT DATE: 20250901
